FAERS Safety Report 14862144 (Version 1)
Quarter: 2018Q2

REPORT INFORMATION
  Report Type: Spontaneous
  Country: FI (occurrence: FI)
  Receive Date: 20180508
  Receipt Date: 20180508
  Transmission Date: 20180711
  Serious: Yes (Other)
  Sender: FDA-Public Use
  Company Number: FI-AMGEN-FINSP2018049636

PATIENT
  Age: 95 Year
  Sex: Male
  Weight: 65 kg

DRUGS (2)
  1. COHEMIN [Concomitant]
     Dosage: UNK UNK, Q3MO
  2. ARANESP [Suspect]
     Active Substance: DARBEPOETIN ALFA
     Indication: ANAEMIA OF MALIGNANT DISEASE
     Dosage: 300 MCG, UNK
     Route: 058
     Dates: start: 20180127

REACTIONS (3)
  - Product storage error [Unknown]
  - Transfusion [Not Recovered/Not Resolved]
  - Drug ineffective [Not Recovered/Not Resolved]

NARRATIVE: CASE EVENT DATE: 20180127
